FAERS Safety Report 7943806-4 (Version None)
Quarter: 2011Q4

REPORT INFORMATION
  Report Type: 
  Country: None (occurrence: None)
  Receive Date: 20111128
  Receipt Date: 20111122
  Transmission Date: 20120403
  Serious: Yes (Hospitalization, Other)
  Sender: FDA-Public Use
  Company Number: US-ROCHE-728117

PATIENT
  Sex: Female
  Weight: 61.2 kg

DRUGS (8)
  1. ACCUTANE [Suspect]
     Indication: ACNE
     Route: 048
  2. AMOXICILLIN [Concomitant]
  3. GUAIFENESIN [Concomitant]
  4. TUSSIONEX (UNITED STATES) [Concomitant]
     Indication: COUGH
  5. PROMETHAZINE [Concomitant]
     Indication: COUGH
  6. BENZONATATE [Concomitant]
     Indication: COUGH
  7. METHYLPREDNISOLONE [Concomitant]
  8. CODEINE SULFATE [Concomitant]
     Indication: COUGH

REACTIONS (5)
  - IRRITABLE BOWEL SYNDROME [None]
  - CROHN'S DISEASE [None]
  - INFLAMMATORY BOWEL DISEASE [None]
  - CHRONIC SINUSITIS [None]
  - HAEMORRHOIDS [None]
